FAERS Safety Report 5080680-0 (Version None)
Quarter: 2006Q3

REPORT INFORMATION
  Report Type: 
  Country: None (occurrence: None)
  Receive Date: 20060720
  Receipt Date: 20050824
  Transmission Date: 20061208
  Serious: Yes (Hospitalization, Other)
  Sender: FDA-Public Use
  Company Number: 2005117864

PATIENT
  Age: 81 Year
  Sex: Female
  Weight: 72.5755 kg

DRUGS (2)
  1. CELEBREX [Suspect]
     Indication: ILL-DEFINED DISORDER
     Dates: end: 20030101
  2. ALL OTHER THERAPEUTIC PRODUCTS (ALL OTHE THERAPEUTIC PRODUCTS) [Concomitant]

REACTIONS (8)
  - BALANCE DISORDER [None]
  - HYPOAESTHESIA [None]
  - NEUROPATHY [None]
  - PAIN [None]
  - PARAESTHESIA [None]
  - POLYP [None]
  - RECTAL HAEMORRHAGE [None]
  - ULCER HAEMORRHAGE [None]
